FAERS Safety Report 10259831 (Version 3)
Quarter: 2014Q4

REPORT INFORMATION
  Report Type: Spontaneous
  Country: US (occurrence: US)
  Receive Date: 20140625
  Receipt Date: 20141031
  Transmission Date: 20150528
  Serious: Yes (Other)
  Sender: FDA-Public Use
  Company Number: US-GLAXOSMITHKLINE-A1077675A

PATIENT
  Sex: Female

DRUGS (11)
  1. VENTOLIN [Suspect]
     Active Substance: ALBUTEROL SULFATE
     Indication: ASTHMA
     Dosage: 90 MCG STRENGTH, AS REQUIRED
     Route: 055
  2. SLEEPING MEDICATION [Concomitant]
     Active Substance: UNSPECIFIED INGREDIENT
  3. VENTOLIN [Suspect]
     Active Substance: ALBUTEROL SULFATE
     Indication: DYSPNOEA
  4. VERAMYST [Suspect]
     Active Substance: FLUTICASONE FUROATE
     Indication: MULTIPLE ALLERGIES
     Dosage: UNKNOWN STRENGTH
     Route: 045
     Dates: start: 2012
  5. ALBUTEROL NEBULIZER SOLUTION [Suspect]
     Active Substance: ALBUTEROL
     Indication: PRODUCT USED FOR UNKNOWN INDICATION
     Dosage: UNKNOWN STRENGTH AND AS NEEDED DOSING
     Route: 065
  6. SEROQUEL [Concomitant]
     Active Substance: QUETIAPINE FUMARATE
  7. OMEPRAZOLE. [Concomitant]
     Active Substance: OMEPRAZOLE
  8. VERAMYST [Suspect]
     Active Substance: FLUTICASONE FUROATE
     Indication: ASTHMA
  9. MIRTAZAPINE. [Concomitant]
     Active Substance: MIRTAZAPINE
  10. LEVETIRACETAM. [Concomitant]
     Active Substance: LEVETIRACETAM
  11. GABAPENTIN. [Concomitant]
     Active Substance: GABAPENTIN

REACTIONS (17)
  - Respiratory arrest [Unknown]
  - Dyspnoea [Unknown]
  - Sinusitis [Unknown]
  - Contusion [Unknown]
  - Vomiting [Unknown]
  - Drug ineffective [Unknown]
  - Cough [Unknown]
  - Fall [Unknown]
  - Drug administration error [Unknown]
  - Dysphonia [Unknown]
  - Amnesia [Unknown]
  - Drug dose omission [Unknown]
  - Pulmonary function test decreased [Unknown]
  - Exostosis [Unknown]
  - Seizure [Unknown]
  - Treatment noncompliance [Unknown]
  - Nocturnal dyspnoea [Unknown]

NARRATIVE: CASE EVENT DATE: 2012
